FAERS Safety Report 5243031-4 (Version None)
Quarter: 2007Q1

REPORT INFORMATION
  Report Type: 
  Country: None (occurrence: None)
  Receive Date: 20070220
  Receipt Date: 20070220
  Transmission Date: 20070707
  Serious: Yes (Other)
  Sender: FDA-Public Use
  Company Number: None

PATIENT
  Age: 8 Year
  Sex: Female
  Weight: 22.2263 kg

DRUGS (2)
  1. VIVAGLOBIN [Suspect]
     Indication: IMMUNODEFICIENCY COMMON VARIABLE
     Dosage: 3.2GM QWK SQ
     Route: 058
     Dates: start: 20070131, end: 20070131
  2. VIVAGLOBIN [Suspect]
     Indication: IMMUNODEFICIENCY COMMON VARIABLE
     Dosage: 3.2GM QWK SQ
     Route: 058
     Dates: start: 20070206, end: 20070206

REACTIONS (2)
  - CONDITION AGGRAVATED [None]
  - CONVULSION [None]
